FAERS Safety Report 25867075 (Version 3)
Quarter: 2025Q4

REPORT INFORMATION
  Report Type: Report from Study
  Country: US (occurrence: US)
  Receive Date: 20251001
  Receipt Date: 20251013
  Transmission Date: 20260118
  Serious: Yes (Hospitalization, Other)
  Sender: JAZZ
  Company Number: US-JAZZ PHARMACEUTICALS-2025-US-022906

PATIENT
  Age: 62 Year
  Sex: Female

DRUGS (40)
  1. XYWAV [Suspect]
     Active Substance: CALCIUM OXYBATE\MAGNESIUM OXYBATE\POTASSIUM OXYBATE\SODIUM OXYBATE
     Indication: Hypersomnia
     Dosage: UNK
  2. XYWAV [Suspect]
     Active Substance: CALCIUM OXYBATE\MAGNESIUM OXYBATE\POTASSIUM OXYBATE\SODIUM OXYBATE
     Dosage: 4.5 GRAM, BID
  3. ALBUTEROL SULFATE [Concomitant]
     Active Substance: ALBUTEROL SULFATE
     Indication: Product used for unknown indication
     Dosage: UNK
  4. ATORVASTATIN [Concomitant]
     Active Substance: ATORVASTATIN
     Indication: Product used for unknown indication
     Dosage: TAKE 1 TABLET (40 MG TOTAL) BY MOUTH DAILY
  5. CALCIUM CARBONATE [Concomitant]
     Active Substance: CALCIUM CARBONATE
     Indication: Product used for unknown indication
     Dosage: UNK
  6. VITAMIN D3 [Concomitant]
     Active Substance: CHOLECALCIFEROL
     Indication: Product used for unknown indication
     Dosage: UNK
  7. CLOBETASOL [Concomitant]
     Active Substance: CLOBETASOL
     Indication: Product used for unknown indication
     Dosage: APPLY TOPICALLY 2 (TWO) TIMES A DAY
  8. METHYLCOBALAMIN [Concomitant]
     Active Substance: METHYLCOBALAMIN
     Indication: Product used for unknown indication
     Dosage: UNK
  9. DESONIDE [Concomitant]
     Active Substance: DESONIDE
     Indication: Product used for unknown indication
     Dosage: UNK
  10. CLIMARA [Concomitant]
     Active Substance: ESTRADIOL
     Indication: Product used for unknown indication
     Dosage: APPLY ONCE PATCH TOPICALLY ONCE A WEEK
  11. FAMOTIDINE [Concomitant]
     Active Substance: FAMOTIDINE
     Indication: Product used for unknown indication
     Dosage: TAKE 1 TABLET BY MOUTH EVERY DAY
  12. FUROSEMIDE [Concomitant]
     Active Substance: FUROSEMIDE
     Indication: Product used for unknown indication
     Dosage: TAKE 1 TABLET (20 MG TOTAL) BY MOUTH DAILY AS NEEDED (EDEMA)
  13. HYOSCYAMINE [Concomitant]
     Active Substance: HYOSCYAMINE
     Indication: Product used for unknown indication
     Dosage: UNK
  14. PROBIOTICS NOS [Concomitant]
     Active Substance: PROBIOTICS NOS
     Indication: Product used for unknown indication
     Dosage: UNK
  15. MECLIZINE HYDROCHLORIDE [Concomitant]
     Active Substance: MECLIZINE HYDROCHLORIDE
     Indication: Product used for unknown indication
     Dosage: TAKE 1 TABLET (25 MG TOTAL) BY MOUTH 3- (THREE) TIMES A DAY AS NEEDED FOR DIZZINESS
  16. MONTELUKAST [Concomitant]
     Active Substance: MONTELUKAST
     Indication: Product used for unknown indication
     Dosage: TAKE 1 TABLET (10 MG TOTAL) BY MOUTH DAILY
  17. OMEPRAZOLE [Concomitant]
     Active Substance: OMEPRAZOLE
     Indication: Product used for unknown indication
     Dosage: TAKE 1 CAPSULE (40 MG TOTAL) BY MOUTH 2 (TWO) TIMES A DAY AS NEEDED
  18. PRAMIPEXOLE DIHYDROCHLORIDE [Concomitant]
     Active Substance: PRAMIPEXOLE DIHYDROCHLORIDE
     Indication: Product used for unknown indication
     Dosage: TAKE 1. TABLET (1 MG TOTAL) BY MOUTH DAILY
  19. PYRIDOSTIGMINE [Concomitant]
     Active Substance: PYRIDOSTIGMINE
     Indication: Product used for unknown indication
     Dosage: TAKE 1 TABLET (60 MG TOTAL) BY MOUTH 4 (FOUR) TIMES A DAY
  20. SPIRONOLACTONE [Concomitant]
     Active Substance: SPIRONOLACTONE
     Indication: Product used for unknown indication
     Dosage: TAKE 1 TABLET (100 MG TOTAL) BY MOUTH DAILY
  21. AZATHIOPRINE [Concomitant]
     Active Substance: AZATHIOPRINE
     Indication: Product used for unknown indication
     Dosage: TAKE 1 TABLET (50 MG TOTAL) BY MOUTH 2 (TWO) TIMES A DAY
  22. PREGABALIN [Concomitant]
     Active Substance: PREGABALIN
     Indication: Product used for unknown indication
     Dosage: TAKE 1 CAPSULE BY MOUTH 3 TIMES DAILY
  23. RECLAST [Concomitant]
     Active Substance: ZOLEDRONIC ACID
     Indication: Product used for unknown indication
     Dosage: 5 MG/100 ML
  24. ADDERALL [Concomitant]
     Active Substance: AMPHETAMINE ASPARTATE\AMPHETAMINE SULFATE\DEXTROAMPHETAMINE SACCHARATE\DEXTROAMPHETAMINE SULFATE
     Indication: Product used for unknown indication
     Dosage: TAKE 1. CAPSULE (20 MG TOTAL) BY MOUTH EVERY MORNING
  25. HYDROXYCHLOROQUINE [Concomitant]
     Active Substance: HYDROXYCHLOROQUINE
     Indication: Product used for unknown indication
     Dosage: UNK
  26. PREDNISONE [Concomitant]
     Active Substance: PREDNISONE
     Indication: Product used for unknown indication
     Dosage: TAKE 1 TABLET (10 MG TOTAL) BY MOUTH DAILY
  27. IVIGLOB EX [Concomitant]
     Active Substance: HUMAN IMMUNOGLOBULIN G
     Indication: Product used for unknown indication
     Dosage: UNK
  28. AIMOVIG [Concomitant]
     Active Substance: ERENUMAB-AOOE
     Indication: Product used for unknown indication
     Dosage: UNK
  29. SUMATRIPTAN SUCCINATE [Concomitant]
     Active Substance: SUMATRIPTAN SUCCINATE
     Indication: Product used for unknown indication
     Dosage: UNK
  30. DIVALPROEX SODIUM [Concomitant]
     Active Substance: DIVALPROEX SODIUM
     Indication: Migraine
     Dosage: 2 DOSAGE FORM
  31. DECADRON [Concomitant]
     Active Substance: DEXAMETHASONE
     Indication: Migraine
     Dosage: 2 DOSAGE FORM
  32. HALOPERIDOL [Concomitant]
     Active Substance: HALOPERIDOL
     Indication: Migraine
     Dosage: 2 DOSAGE FORM TAKE 2 TABLETS (10 MG TOTAL) BY MOUTH DAILY AS NEEDED (MIGRAINES)
  33. MAGNESIUM GLUCONATE [Concomitant]
     Active Substance: MAGNESIUM GLUCONATE
     Indication: Migraine
     Dosage: 2 DOSAGE FORM
  34. ACRIVASTINE [Concomitant]
     Active Substance: ACRIVASTINE
     Indication: Migraine
     Dosage: 2 DOSAGE FORM
  35. ZOFRAN [Concomitant]
     Active Substance: ONDANSETRON HYDROCHLORIDE
     Dosage: TAKE 1 TABLET (4 MG TOTAL) BY MOUTH EVERY 8 (EIGHT) HOURS AS NEEDED. FOR NAUSEA OR VOMITING
  36. MULTIVITAMINES WITH IRON [ASCORBIC ACID;CYANOCOBALAMIN;ERGOCALCIFEROL; [Concomitant]
     Dosage: TAKE 1 TABLET BY MOUTH DAILY
  37. ATROVENT [Concomitant]
     Active Substance: IPRATROPIUM BROMIDE
     Indication: Product used for unknown indication
     Dosage: ADMINISTER 1 SPRAY INTO EACH NOSTRIL 3 (THREE) TIMES A DAY
  38. FLONASE [Concomitant]
     Active Substance: FLUTICASONE PROPIONATE
     Indication: Product used for unknown indication
     Dosage: ADMINISTER 1 SPRAY INTO EACH NOSTRIL 2 (TWO) TIMES A DAY
  39. XIIDRA [Concomitant]
     Active Substance: LIFITEGRAST
     Dosage: ADMINISTER 1 DROP INTO BOTH EYES 2 (TWO) TIMES A DAY
  40. EPIPEN [Concomitant]
     Active Substance: EPINEPHRINE
     Indication: Product used for unknown indication
     Dosage: INJECT 0.3 ML (0.3 MG TOTAL) INTO MUSCLE AS NEEDED FOR ANAPHYLAXIS

REACTIONS (5)
  - Tendon rupture [Not Recovered/Not Resolved]
  - Neuropathy peripheral [Unknown]
  - Anaemia macrocytic [Unknown]
  - Pre-existing condition improved [Unknown]
  - Illness [Unknown]

NARRATIVE: CASE EVENT DATE: 20250101
